FAERS Safety Report 4955843-2 (Version None)
Quarter: 2006Q1

REPORT INFORMATION
  Report Type: 
  Country: None (occurrence: None)
  Receive Date: 20060327
  Receipt Date: 20060327
  Transmission Date: 20060701
  Serious: Yes (Hospitalization, Disabling)
  Sender: FDA-Public Use
  Company Number: None

PATIENT
  Age: 75 Year
  Sex: Female
  Weight: 52 kg

DRUGS (2)
  1. BENZOCAINE -HURRICAINE- SPRAY 20% BEUTLICH PHARMACEUTICALS [Suspect]
     Indication: ANAESTHESIA
     Dosage: SPRAY 1 TIME TOP
     Route: 061
     Dates: start: 20060323, end: 20060323
  2. BENZOCAINE -HURRICAINE- SPRAY 20% BEUTLICH PHARMACEUTICALS [Suspect]
     Indication: BRONCHOSCOPY
     Dosage: SPRAY 1 TIME TOP
     Route: 061
     Dates: start: 20060323, end: 20060323

REACTIONS (1)
  - METHAEMOGLOBINAEMIA [None]
